FAERS Safety Report 18462442 (Version 1)
Quarter: 2020Q4

REPORT INFORMATION
  Report Type: Spontaneous
  Country: US (occurrence: US)
  Receive Date: 20201103
  Receipt Date: 20201103
  Transmission Date: 20210114
  Serious: Yes (Other)
  Sender: FDA-Public Use
  Company Number: None

PATIENT
  Age: 52 Year
  Sex: Female

DRUGS (1)
  1. BUPROPION HYDROCHLORIDE XL [Suspect]
     Active Substance: BUPROPION HYDROCHLORIDE
     Indication: DEPRESSION
     Dosage: ?          QUANTITY:1 TABLET(S);?
     Route: 048

REACTIONS (10)
  - Anger [None]
  - Abnormal behaviour [None]
  - Product substitution issue [None]
  - Hyperacusis [None]
  - Product formulation issue [None]
  - Insomnia [None]
  - Disturbance in attention [None]
  - Tremor [None]
  - Fatigue [None]
  - Product complaint [None]

NARRATIVE: CASE EVENT DATE: 20201101
